FAERS Safety Report 10903312 (Version 2)
Quarter: 2015Q1

REPORT INFORMATION
  Report Type: Spontaneous
  Country: GB (occurrence: GB)
  Receive Date: 20150311
  Receipt Date: 20150330
  Transmission Date: 20150721
  Serious: Yes (Hospitalization)
  Sender: FDA-Public Use
  Company Number: GB-ACCORD-029102

PATIENT
  Age: 71 Year
  Sex: Male

DRUGS (7)
  1. FUROSEMIDE. [Concomitant]
     Active Substance: FUROSEMIDE
  2. AMLODIPINE [Concomitant]
     Active Substance: AMLODIPINE BESYLATE
  3. PARACETAMOL [Concomitant]
     Active Substance: ACETAMINOPHEN
  4. RAMIPRIL. [Concomitant]
     Active Substance: RAMIPRIL
  5. CLOPIDOGREL [Suspect]
     Active Substance: CLOPIDOGREL BISULFATE
     Indication: PRODUCT USED FOR UNKNOWN INDICATION
     Dosage: TAKEN IN MORNING
     Route: 048
     Dates: end: 20150221
  6. LANSOPRAZOLE. [Concomitant]
     Active Substance: LANSOPRAZOLE
  7. MORPHINE [Concomitant]
     Active Substance: MORPHINE

REACTIONS (4)
  - Hiatus hernia [Unknown]
  - Haematemesis [Unknown]
  - Abdominal pain [Unknown]
  - Gastrointestinal haemorrhage [Recovering/Resolving]

NARRATIVE: CASE EVENT DATE: 20150221
